FAERS Safety Report 15156884 (Version 1)
Quarter: 2018Q3

REPORT INFORMATION
  Report Type: Spontaneous
  Country: FR (occurrence: FR)
  Receive Date: 20180718
  Receipt Date: 20180718
  Transmission Date: 20181010
  Serious: Yes (Other)
  Sender: FDA-Public Use
  Company Number: FR-TEVA-2018-FR-926733

PATIENT
  Age: 24 Year
  Sex: Male

DRUGS (4)
  1. ACIDE CLAVULANIQUE [Suspect]
     Active Substance: CLAVULANIC ACID
     Indication: TONSILLITIS
     Route: 048
     Dates: start: 20170115
  2. ACIDE ACETYLSALICYLIQUE [Suspect]
     Active Substance: ASPIRIN
     Indication: TONSILLITIS
     Route: 048
     Dates: start: 20170115
  3. AMOXICILLINE [Suspect]
     Active Substance: AMOXICILLIN
     Indication: TONSILLITIS
     Route: 048
     Dates: start: 20170115
  4. PREDNISOLONE. [Suspect]
     Active Substance: PREDNISOLONE
     Indication: TONSILLITIS
     Route: 048
     Dates: start: 20170115

REACTIONS (1)
  - Hypersensitivity [Recovered/Resolved]

NARRATIVE: CASE EVENT DATE: 20170115
